FAERS Safety Report 25173288 (Version 1)
Quarter: 2025Q2

REPORT INFORMATION
  Report Type: Spontaneous
  Country: KR (occurrence: KR)
  Receive Date: 20250408
  Receipt Date: 20250408
  Transmission Date: 20250717
  Serious: Yes (Hospitalization, Other)
  Sender: SANOFI AVENTIS
  Company Number: KR-SA-2025SA096051

PATIENT
  Age: 47 Year
  Sex: Female

DRUGS (11)
  1. ARAVA [Suspect]
     Active Substance: LEFLUNOMIDE
     Dates: start: 20201222
  2. TRETINOIN [Suspect]
     Active Substance: TRETINOIN
     Indication: Cytomegalovirus infection
     Dosage: 45 MG, Q12H
     Dates: start: 20190313, end: 20190819
  3. GANCICLOVIR [Suspect]
     Active Substance: GANCICLOVIR
     Indication: Congenital cytomegalovirus infection
     Dates: start: 20201105, end: 20201109
  4. GANCICLOVIR [Suspect]
     Active Substance: GANCICLOVIR
     Dates: start: 20201124
  5. GANCICLOVIR [Suspect]
     Active Substance: GANCICLOVIR
     Dates: start: 20201205
  6. GANCICLOVIR [Suspect]
     Active Substance: GANCICLOVIR
     Dates: start: 20201211
  7. GANCICLOVIR [Suspect]
     Active Substance: GANCICLOVIR
     Dates: start: 20201218
  8. GANCICLOVIR [Suspect]
     Active Substance: GANCICLOVIR
     Dates: start: 20201222
  9. DEXAMETHASONE [Suspect]
     Active Substance: DEXAMETHASONE
     Dates: start: 20170514, end: 20171011
  10. FLUDARABINE PHOSPHATE [Suspect]
     Active Substance: FLUDARABINE PHOSPHATE
     Dates: start: 20170514, end: 20171011
  11. RITUXIMAB [Suspect]
     Active Substance: RITUXIMAB
     Indication: B-cell lymphoma
     Dates: start: 20151023, end: 20160629

REACTIONS (7)
  - Pneumonia viral [Unknown]
  - Cytomegalovirus infection [Not Recovered/Not Resolved]
  - Cytomegalovirus colitis [Unknown]
  - Cytomegalovirus chorioretinitis [Unknown]
  - Pyrexia [Unknown]
  - Dyspnoea [Not Recovered/Not Resolved]
  - Nausea [Unknown]

NARRATIVE: CASE EVENT DATE: 20201223
